FAERS Safety Report 12100047 (Version 1)
Quarter: 2016Q1

REPORT INFORMATION
  Report Type: Spontaneous
  Country: US (occurrence: None)
  Receive Date: 20160219
  Receipt Date: 20160219
  Transmission Date: 20160526
  Serious: No
  Sender: FDA-Public Use
  Company Number: None

PATIENT
  Age: 58 Year
  Sex: Male

DRUGS (3)
  1. TEMOZOLOMIDE 180MG [Suspect]
     Active Substance: TEMOZOLOMIDE
     Indication: THYROID CANCER
     Route: 048
     Dates: start: 20151002
  2. AVASTIN [Concomitant]
     Active Substance: BEVACIZUMAB
  3. TEMOZOLOMIDE 100MG [Suspect]
     Active Substance: TEMOZOLOMIDE
     Indication: THYROID CANCER
     Route: 048
     Dates: start: 20151002

REACTIONS (1)
  - Fatigue [None]

NARRATIVE: CASE EVENT DATE: 201602
